FAERS Safety Report 18088732 (Version 3)
Quarter: 2020Q3

REPORT INFORMATION
  Report Type: Report from Study
  Country: DE (occurrence: DE)
  Receive Date: 20200729
  Receipt Date: 20200930
  Transmission Date: 20201103
  Serious: Yes (Hospitalization)
  Sender: FDA-Public Use
  Company Number: DE-SHIRE-DE202024209

PATIENT

DRUGS (2)
  1. IDURSULFASE [Suspect]
     Active Substance: IDURSULFASE
     Indication: MUCOPOLYSACCHARIDOSIS II
     Dosage: 24 MILLIGRAM, 1X/WEEK
     Route: 042
     Dates: start: 2015
  2. IDURSULFASE [Suspect]
     Active Substance: IDURSULFASE
     Dosage: 24 MILLIGRAM
     Route: 042
     Dates: start: 20200921

REACTIONS (1)
  - Sleep disorder [Recovered/Resolved]

NARRATIVE: CASE EVENT DATE: 20200722
